FAERS Safety Report 7895924-7 (Version None)
Quarter: 2011Q4

REPORT INFORMATION
  Report Type: 
  Country: None (occurrence: None)
  Receive Date: 20111102
  Receipt Date: 20111024
  Transmission Date: 20120403
  Serious: Yes (Other)
  Sender: FDA-Public Use
  Company Number: AUR-APL-2011-04948

PATIENT
  Sex: Female

DRUGS (9)
  1. LEVOXYL [Concomitant]
  2. FAMCICLOVIR [Suspect]
     Indication: CHRONIC FATIGUE SYNDROME
     Dosage: 3 DOSAGE FORMS (1 DOSAGE FORMS, 3 IN 1 D), ORAL
     Route: 048
  3. MIRTAZAPINE [Concomitant]
  4. VICODIN [Concomitant]
  5. TRYPTOPHAN (TRYPTOPHAN, L-) [Concomitant]
  6. LORAZEPAM [Concomitant]
  7. MELATONIN (MELATONIN) [Concomitant]
  8. TEFRETOL (CARBAMAZEPINE) [Concomitant]
  9. FENTANYL [Concomitant]

REACTIONS (6)
  - MALAISE [None]
  - RESTLESS LEGS SYNDROME [None]
  - POISONING [None]
  - MIGRAINE [None]
  - AGITATION [None]
  - CONDITION AGGRAVATED [None]
